FAERS Safety Report 7200673-4 (Version None)
Quarter: 2010Q4

REPORT INFORMATION
  Report Type: 
  Country: None (occurrence: None)
  Receive Date: 20101228
  Receipt Date: 20101222
  Transmission Date: 20110411
  Serious: Yes (Death)
  Sender: FDA-Public Use
  Company Number: CA-ABBOTT-10P-028-0693610-00

PATIENT
  Sex: Male

DRUGS (8)
  1. LUPRON DEPOT [Suspect]
     Indication: PROSTATE CANCER
     Dates: end: 20101206
  2. ACETAMINOPHEN [Concomitant]
     Indication: PRODUCT USED FOR UNKNOWN INDICATION
     Dosage: QID + PRN
  3. NOVAMLOR [Concomitant]
     Indication: PRODUCT USED FOR UNKNOWN INDICATION
     Dosage: 5 - 50 MG
  4. FUROSEMIDE [Concomitant]
     Indication: PRODUCT USED FOR UNKNOWN INDICATION
  5. SIMVASTATIN [Concomitant]
     Indication: PRODUCT USED FOR UNKNOWN INDICATION
  6. ALTACE [Concomitant]
     Indication: PRODUCT USED FOR UNKNOWN INDICATION
  7. ZAROXOLYN [Concomitant]
     Indication: PRODUCT USED FOR UNKNOWN INDICATION
  8. COZAAR [Concomitant]
     Indication: PRODUCT USED FOR UNKNOWN INDICATION

REACTIONS (1)
  - DEATH [None]
